FAERS Safety Report 7330085-4 (Version None)
Quarter: 2011Q1

REPORT INFORMATION
  Report Type: 
  Country: None (occurrence: None)
  Receive Date: 20110303
  Receipt Date: 20110221
  Transmission Date: 20110831
  Serious: Yes (Death, Hospitalization, Other)
  Sender: FDA-Public Use
  Company Number: GB-ELI_LILLY_AND_COMPANY-GB201101005727

PATIENT
  Age: 61 Year
  Sex: Female

DRUGS (6)
  1. GEMCITABINE HYDROCHLORIDE [Suspect]
     Indication: ANGIOSARCOMA
     Dosage: UNK, UNKNOWN, EACH CYCLE
     Route: 065
  2. IFOSFAMIDE [Concomitant]
  3. DOXORUBICIN [Concomitant]
  4. HYDROCORTISONE [Concomitant]
  5. DOCETAXEL [Concomitant]
     Indication: ANGIOSARCOMA
     Dosage: UNK, UNKNOWN, EACH CYCLE
     Route: 065
  6. CISPLATIN [Concomitant]

REACTIONS (3)
  - HAEMORRHAGE [None]
  - DISEASE PROGRESSION [None]
  - THROMBOCYTOPENIA [None]
